FAERS Safety Report 18599945 (Version 1)
Quarter: 2020Q4

REPORT INFORMATION
  Report Type: Spontaneous
  Country: GB (occurrence: GB)
  Receive Date: 20201210
  Receipt Date: 20201210
  Transmission Date: 20210114
  Serious: Yes (Disabling)
  Sender: FDA-Public Use
  Company Number: NVSC2020GB320456

PATIENT
  Age: 35 Year
  Sex: Male
  Weight: 119 kg

DRUGS (1)
  1. ADALIMUMAB [Suspect]
     Active Substance: ADALIMUMAB
     Indication: PSORIASIS
     Dosage: 40 MG, BIW
     Route: 058
     Dates: start: 20131025, end: 20201009

REACTIONS (8)
  - Balance disorder [Recovering/Resolving]
  - Optic neuritis [Recovering/Resolving]
  - Muscular weakness [Recovering/Resolving]
  - White matter lesion [Unknown]
  - Demyelination [Unknown]
  - Visual impairment [Recovering/Resolving]
  - Coccydynia [Not Recovered/Not Resolved]
  - Hypoaesthesia [Not Recovered/Not Resolved]

NARRATIVE: CASE EVENT DATE: 202010
